FAERS Safety Report 6554197-8 (Version None)
Quarter: 2010Q1

REPORT INFORMATION
  Report Type: 
  Country: None (occurrence: None)
  Receive Date: 20100127
  Receipt Date: 20100114
  Transmission Date: 20100710
  Serious: Yes (Other)
  Sender: FDA-Public Use
  Company Number: FR-WATSON-2010-00602

PATIENT
  Age: 66 Year
  Sex: Male
  Weight: 82 kg

DRUGS (4)
  1. IRINOTECAN HCL [Suspect]
     Indication: COLON CANCER RECURRENT
     Dosage: 180 MG/MM
  2. FLUOROURACIL [Suspect]
     Indication: COLON CANCER
     Dosage: UNK
  3. CETUXIMAB [Suspect]
     Indication: COLON CANCER
     Dosage: 250 MG/MM
  4. OXALIPLATIN [Suspect]
     Indication: COLON CANCER

REACTIONS (4)
  - DIARRHOEA [None]
  - NEUROPATHY PERIPHERAL [None]
  - NEUTROPENIA [None]
  - SKIN TOXICITY [None]
